FAERS Safety Report 12214569 (Version 1)
Quarter: 2016Q1

REPORT INFORMATION
  Report Type: Spontaneous
  Country: FR (occurrence: FR)
  Receive Date: 20160328
  Receipt Date: 20160328
  Transmission Date: 20160526
  Serious: Yes (Hospitalization)
  Sender: FDA-Public Use
  Company Number: FR-ABBVIE-16P-056-1592861-00

PATIENT
  Age: 39 Year
  Sex: Female

DRUGS (3)
  1. DEPAKINE CHRONO [Suspect]
     Active Substance: VALPROATE SODIUM
     Indication: GLIOBLASTOMA
     Route: 048
     Dates: start: 201509, end: 20151021
  2. TAHOR [Suspect]
     Active Substance: ATORVASTATIN CALCIUM
     Indication: GLIOBLASTOMA
     Route: 048
     Dates: start: 201509, end: 201510
  3. CARBOPLATIN. [Suspect]
     Active Substance: CARBOPLATIN
     Indication: GLIOBLASTOMA
     Route: 042
     Dates: start: 20150828, end: 20150901

REACTIONS (2)
  - Cell death [Recovering/Resolving]
  - Cholestasis [Recovering/Resolving]

NARRATIVE: CASE EVENT DATE: 20150930
